FAERS Safety Report 4759258-1 (Version None)
Quarter: 2005Q3

REPORT INFORMATION
  Report Type: 
  Country: None (occurrence: None)
  Receive Date: 20050831
  Receipt Date: 20050823
  Transmission Date: 20060218
  Serious: Yes (Death)
  Sender: FDA-Public Use
  Company Number: 2005109555

PATIENT
  Sex: Female

DRUGS (5)
  1. GENOTROPIN [Suspect]
     Indication: RENAL FAILURE CHRONIC
     Dosage: SEE IMAGE
     Dates: start: 19971030, end: 19990929
  2. GENOTROPIN [Suspect]
     Indication: RENAL FAILURE CHRONIC
     Dosage: SEE IMAGE
     Dates: start: 19990930, end: 20000806
  3. GENOTROPIN [Suspect]
     Indication: RENAL FAILURE CHRONIC
     Dosage: SEE IMAGE
     Dates: start: 20000807, end: 20020306
  4. GENOTROPIN [Suspect]
     Indication: RENAL FAILURE CHRONIC
     Dosage: SEE IMAGE
     Dates: start: 20020307, end: 20030306
  5. GENOTROPIN [Suspect]
     Indication: RENAL FAILURE CHRONIC
     Dosage: SEE IMAGE
     Dates: start: 20050101, end: 20050101

REACTIONS (6)
  - ELECTROLYTE IMBALANCE [None]
  - GENERAL PHYSICAL CONDITION ABNORMAL [None]
  - GRAFT VERSUS HOST DISEASE [None]
  - RENAL FAILURE ACUTE [None]
  - RENAL TRANSPLANT [None]
  - THERAPY NON-RESPONDER [None]
